FAERS Safety Report 10151000 (Version 1)
Quarter: 2014Q2

REPORT INFORMATION
  Report Type: Spontaneous
  Country: US (occurrence: DE)
  Receive Date: 20140502
  Receipt Date: 20140502
  Transmission Date: 20141212
  Serious: Yes (Other)
  Sender: FDA-Public Use
  Company Number: DE-FRI-1000067022

PATIENT
  Age: 87 Year
  Sex: Male

DRUGS (3)
  1. ROFLUMILAST [Suspect]
     Dates: start: 2014
  2. SPIRIVA [Concomitant]
  3. VIANI FORTE [Concomitant]

REACTIONS (7)
  - Crying [Unknown]
  - Personality change [Unknown]
  - Pneumonia [Unknown]
  - Aggression [Unknown]
  - Suicidal ideation [Unknown]
  - Depression [Unknown]
  - Diarrhoea [Unknown]
